FAERS Safety Report 13720838 (Version 3)
Quarter: 2017Q3

REPORT INFORMATION
  Report Type: Report from Study
  Country: ES (occurrence: ES)
  Receive Date: 20170706
  Receipt Date: 20170810
  Transmission Date: 20171127
  Serious: Yes (Hospitalization)
  Sender: FDA-Public Use
  Company Number: ES-ROCHE-1958187

PATIENT
  Age: 58 Year
  Sex: Female
  Weight: 74 kg

DRUGS (8)
  1. OPENVAS (OLMESARTAN MEDOXOMIL) [Concomitant]
     Active Substance: OLMESARTAN MEDOXOMIL
     Indication: HYPERTENSION
     Route: 048
     Dates: start: 2007
  2. EBASTEL [Concomitant]
     Active Substance: EBASTINE
     Indication: URTICARIA
     Route: 048
     Dates: start: 20170627, end: 20170629
  3. ESOMEPRAZOL [Concomitant]
     Active Substance: ESOMEPRAZOLE
     Indication: PROPHYLAXIS
     Route: 048
     Dates: start: 20170629, end: 20170630
  4. EUTIROX [Concomitant]
     Active Substance: LEVOTHYROXINE SODIUM
     Indication: HYPOTHYROIDISM
     Route: 048
     Dates: start: 2014
  5. ESOMEPRAZOL [Concomitant]
     Active Substance: ESOMEPRAZOLE
     Route: 042
     Dates: start: 20170630, end: 20170705
  6. LYRICA [Concomitant]
     Active Substance: PREGABALIN
     Dosage: SPINAL NERVE PAIN PROPHYLAXIS
     Route: 048
     Dates: start: 201703
  7. VEMURAFENIB. [Suspect]
     Active Substance: VEMURAFENIB
     Indication: METASTATIC MALIGNANT MELANOMA
     Dosage: DATE OF MOST RECENT DOSE: 29/JUN/2017
     Route: 048
     Dates: start: 20170620
  8. COBIMETINIB. [Suspect]
     Active Substance: COBIMETINIB
     Indication: METASTATIC MALIGNANT MELANOMA
     Dosage: DATE OF MOST RECENT DOSE 29/JUN/2017
     Route: 048
     Dates: start: 20170620

REACTIONS (1)
  - Erythema multiforme [Not Recovered/Not Resolved]

NARRATIVE: CASE EVENT DATE: 20170629
